FAERS Safety Report 4919891-0 (Version None)
Quarter: 2006Q1

REPORT INFORMATION
  Report Type: 
  Country: None (occurrence: None)
  Receive Date: 20060221
  Receipt Date: 20060221
  Transmission Date: 20060701
  Serious: Yes (Hospitalization, Other)
  Sender: FDA-Public Use
  Company Number: None

PATIENT
  Sex: Male
  Weight: 89 kg

DRUGS (2)
  1. ALFA 2 INTERFERON 2B (INTRON-A) [Suspect]
     Indication: RENAL CELL CARCINOMA STAGE UNSPECIFIED
     Dosage: 3 MG
     Dates: end: 20060124
  2. LEVAQUIN [Concomitant]

REACTIONS (7)
  - ASTHENIA [None]
  - ATELECTASIS [None]
  - CARDIAC FAILURE CONGESTIVE [None]
  - LUNG INFILTRATION [None]
  - NAUSEA [None]
  - PNEUMONIA [None]
  - VOMITING [None]
